FAERS Safety Report 21659038 (Version 1)
Quarter: 2022Q4

REPORT INFORMATION
  Report Type: Spontaneous
  Country: TW (occurrence: TW)
  Receive Date: 20221129
  Receipt Date: 20221129
  Transmission Date: 20230113
  Serious: Yes (Death, Hospitalization)
  Sender: FDA-Public Use
  Company Number: TW-BAYER-2022A159832

PATIENT
  Sex: Male
  Weight: 58 kg

DRUGS (1)
  1. XOFIGO [Suspect]
     Active Substance: RADIUM RA-223 DICHLORIDE

REACTIONS (4)
  - Septic shock [Fatal]
  - Pneumonia [None]
  - Pleural effusion [None]
  - Dyspnoea [None]

NARRATIVE: CASE EVENT DATE: 20221101
